FAERS Safety Report 17893029 (Version 11)
Quarter: 2022Q2

REPORT INFORMATION
  Report Type: Report from Study
  Country: CA (occurrence: CA)
  Receive Date: 20200613
  Receipt Date: 20220516
  Transmission Date: 20220720
  Serious: Yes (Hospitalization, Other)
  Sender: FDA-Public Use
  Company Number: PHHY2015CA114497

PATIENT
  Age: 53 Year
  Sex: Female

DRUGS (6)
  1. SANDOSTATIN LAR DEPOT [Suspect]
     Active Substance: OCTREOTIDE ACETATE
     Indication: Neuroendocrine tumour
     Dosage: 20 MG, QMO (EVERY 4 WEEKS)
     Route: 030
     Dates: start: 20150828, end: 20170405
  2. SANDOSTATIN LAR DEPOT [Suspect]
     Active Substance: OCTREOTIDE ACETATE
     Dosage: 30 MG, QMO (EVERY 4 WEEKS)
     Route: 030
     Dates: start: 20150828
  3. SANDOSTATIN LAR DEPOT [Suspect]
     Active Substance: OCTREOTIDE ACETATE
     Dosage: 30 MG, QMO (EVERY 4 WEEKS)
     Route: 030
     Dates: start: 20170515
  4. SANDOSTATIN [Concomitant]
     Active Substance: OCTREOTIDE ACETATE
     Indication: Product used for unknown indication
     Dosage: UNK, TID
     Route: 058
     Dates: start: 20170501
  5. OCPHYL [Concomitant]
     Indication: Product used for unknown indication
     Dosage: 100 UG, BID
     Route: 058
     Dates: start: 20170515, end: 20170515
  6. VITAMIN D [Concomitant]
     Active Substance: VITAMIN D NOS
     Indication: Product used for unknown indication
     Dosage: UNK (10,000 UNIT)
     Route: 065

REACTIONS (24)
  - Intestinal obstruction [Unknown]
  - Mesenteric neoplasm [Unknown]
  - Bradycardia [Unknown]
  - Feeling hot [Unknown]
  - Arthralgia [Unknown]
  - Erythema [Unknown]
  - Nasal congestion [Unknown]
  - Stress [Unknown]
  - Nasopharyngitis [Recovered/Resolved]
  - Chills [Recovered/Resolved]
  - Myalgia [Recovered/Resolved]
  - Rhinorrhoea [Recovered/Resolved]
  - Ligament sprain [Unknown]
  - Pain [Unknown]
  - Fall [Unknown]
  - Blood pressure systolic increased [Unknown]
  - Faeces discoloured [Unknown]
  - Decreased appetite [Unknown]
  - Abdominal distension [Unknown]
  - Nausea [Unknown]
  - Hypoglycaemia [Unknown]
  - Fatigue [Unknown]
  - Alopecia [Recovering/Resolving]
  - Product dose omission issue [Unknown]

NARRATIVE: CASE EVENT DATE: 20150801
